FAERS Safety Report 8578107-7 (Version None)
Quarter: 2012Q3

REPORT INFORMATION
  Report Type: 
  Country: None (occurrence: None)
  Receive Date: 20120808
  Receipt Date: 20120806
  Transmission Date: 20120928
  Serious: Yes (Death, Hospitalization, Other)
  Sender: FDA-Public Use
  Company Number: PHHY2009CA42642

PATIENT
  Sex: Female

DRUGS (9)
  1. MORPHINE SULFATE [Concomitant]
  2. CHEMOTHERAPEUTICS [Concomitant]
     Dates: start: 20120401
  3. SANDOSTATIN LAR [Suspect]
     Dosage: 30 MG, QMO
     Route: 030
  4. AFINITOR [Suspect]
     Indication: CARCINOID TUMOUR
     Route: 048
     Dates: start: 20100705
  5. SANDOSTATIN LAR [Suspect]
     Indication: CARCINOID TUMOUR
     Dosage: 30 MG ONCE A MONTH
     Route: 030
     Dates: start: 20090604, end: 20100118
  6. SANDOSTATIN LAR [Suspect]
     Dosage: 20 MG EVERY 4 WEEKS
     Route: 030
  7. SANDOSTATIN LAR [Suspect]
     Dosage: 30 MG EVERY 4 WEEKS
     Route: 030
  8. SANDOSTATIN LAR [Suspect]
     Dosage: 30 MG, EVERY FOUR WEEKS
     Route: 030
     Dates: end: 20120618
  9. RADIOTHERAPY [Concomitant]

REACTIONS (10)
  - BLOOD PRESSURE DIASTOLIC DECREASED [None]
  - FATIGUE [None]
  - HYPERHIDROSIS [None]
  - FLUID RETENTION [None]
  - VOMITING [None]
  - DECREASED APPETITE [None]
  - WEIGHT DECREASED [None]
  - INJECTION SITE PAIN [None]
  - BACK PAIN [None]
  - METASTASES TO SPINE [None]
